FAERS Safety Report 4515318-1 (Version None)
Quarter: 2004Q4

REPORT INFORMATION
  Report Type: 
  Country: None (occurrence: None)
  Receive Date: 20041126
  Receipt Date: 20041117
  Transmission Date: 20050328
  Serious: Yes (Hospitalization)
  Sender: FDA-Public Use
  Company Number: S04-USA-07469-01

PATIENT
  Age: 65 Year
  Sex: Male

DRUGS (5)
  1. LEXAPRO [Suspect]
     Indication: DEPRESSION
     Dosage: 10 MG QD PO
     Route: 048
     Dates: start: 20040212, end: 20040618
  2. MIRAPEX [Suspect]
     Indication: PARKINSON'S DISEASE
     Dosage: 1.5 MG QD PO
     Route: 048
     Dates: start: 20040501, end: 20040528
  3. MIRAPEX [Suspect]
     Indication: PARKINSON'S DISEASE
     Dosage: 0.75 MG QD PO
     Route: 048
     Dates: start: 20040601, end: 20040615
  4. MIRAPEX [Suspect]
     Indication: PARKINSON'S DISEASE
     Dates: start: 20040511, end: 20040501
  5. MIRAPEX [Suspect]
     Indication: PARKINSON'S DISEASE
     Dates: start: 20040602, end: 20040601

REACTIONS (6)
  - CONFUSIONAL STATE [None]
  - DELIRIUM [None]
  - DEMENTIA [None]
  - ENCEPHALOPATHY [None]
  - HALLUCINATION [None]
  - PSYCHOTIC DISORDER [None]
